FAERS Safety Report 17805327 (Version 2)
Quarter: 2020Q2

REPORT INFORMATION
  Report Type: Spontaneous
  Country: BR (occurrence: BR)
  Receive Date: 20200519
  Receipt Date: 20200615
  Transmission Date: 20200714
  Serious: Yes (Other)
  Sender: FDA-Public Use
  Company Number: NVSC2020BR121643

PATIENT
  Sex: Male
  Weight: 83 kg

DRUGS (3)
  1. EXFORGE HCT [Suspect]
     Active Substance: AMLODIPINE BESYLATE\HYDROCHLOROTHIAZIDE\VALSARTAN
     Indication: BLOOD PRESSURE ABNORMAL
     Dosage: 1 DF (10 MG AMLODIPINE, 25 MG HYDROCHLOROTHIAZIDE, 320 MG VALSARTAN), (STARTED APPROXIMATELY 5 YEARS
     Route: 048
     Dates: start: 2015
  2. GLIFAGE [Concomitant]
     Active Substance: METFORMIN HYDROCHLORIDE
     Indication: DIABETES MELLITUS
     Dosage: (8 YEARS AGO)UNK, QD
     Route: 048
  3. EXFORGE HCT [Suspect]
     Active Substance: AMLODIPINE BESYLATE\HYDROCHLOROTHIAZIDE\VALSARTAN
     Indication: HYPERTENSION

REACTIONS (4)
  - Headache [Recovered/Resolved]
  - Drug ineffective [Not Recovered/Not Resolved]
  - Hypertension [Recovered/Resolved]
  - Dysuria [Not Recovered/Not Resolved]
